FAERS Safety Report 9751569 (Version 1)
Quarter: 2013Q4

REPORT INFORMATION
  Report Type: Spontaneous
  Country: GB (occurrence: GB)
  Receive Date: 20131212
  Receipt Date: 20131212
  Transmission Date: 20140711
  Serious: Yes (Death)
  Sender: FDA-Public Use
  Company Number: PHHY2013GB142795

PATIENT
  Age: 76 Year
  Sex: Male

DRUGS (2)
  1. CLARITHROMYCIN [Suspect]
  2. PHYLLOCONTIN CONTINUS [Interacting]
     Dosage: 225 MG, UNK
     Route: 065

REACTIONS (2)
  - Heart rate increased [Fatal]
  - Drug interaction [Fatal]
